FAERS Safety Report 4803552-2 (Version None)
Quarter: 2005Q4

REPORT INFORMATION
  Report Type: 
  Country: None (occurrence: None)
  Receive Date: 20051019
  Receipt Date: 20051007
  Transmission Date: 20060501
  Serious: Yes (Hospitalization)
  Sender: FDA-Public Use
  Company Number: CH-BRISTOL-MYERS SQUIBB COMPANY-13143938

PATIENT
  Age: 82 Year
  Sex: Female

DRUGS (7)
  1. METFORMIN HCL [Suspect]
     Route: 048
     Dates: end: 20050922
  2. GLYBURIDE [Interacting]
     Route: 048
     Dates: end: 20050922
  3. COREG [Interacting]
     Route: 048
  4. DIOVAN [Concomitant]
     Route: 048
  5. CRESTOR [Concomitant]
     Route: 048
  6. IMOVANE [Concomitant]
     Route: 048
  7. MAGNESIUM [Concomitant]
     Route: 048

REACTIONS (2)
  - DRUG INTERACTION [None]
  - HYPOGLYCAEMIA [None]
